FAERS Safety Report 5710217-1 (Version None)
Quarter: 2008Q2

REPORT INFORMATION
  Report Type: 
  Country: None (occurrence: None)
  Receive Date: 20080418
  Receipt Date: 20080408
  Transmission Date: 20081010
  Serious: Yes (Hospitalization)
  Sender: FDA-Public Use
  Company Number: JP-PFIZER INC-2008021535

PATIENT
  Age: 84 Year
  Sex: Male

DRUGS (1)
  1. CELECOX [Suspect]
     Indication: OSTEOARTHRITIS
     Dosage: DAILY DOSE:100MG
     Route: 048
     Dates: start: 20080108, end: 20080302

REACTIONS (1)
  - GASTRIC CANCER [None]
